FAERS Safety Report 8099401-2 (Version None)
Quarter: 2012Q1

REPORT INFORMATION
  Report Type: 
  Country: None (occurrence: None)
  Receive Date: 20120129
  Receipt Date: 20111004
  Transmission Date: 20120608
  Serious: Yes (Hospitalization)
  Sender: FDA-Public Use
  Company Number: US-ABBOTT-11P-163-0861556-00

PATIENT
  Sex: Female
  Weight: 39.044 kg

DRUGS (5)
  1. HUMIRA [Suspect]
     Dates: end: 20100101
  2. PHENERGAN [Concomitant]
     Indication: NAUSEA
  3. DEPO-PROVERA [Concomitant]
     Indication: CONTRACEPTION
  4. MULTI-VITAMINS [Concomitant]
     Indication: VITAMIN SUPPLEMENTATION
  5. HUMIRA [Suspect]
     Indication: CROHN'S DISEASE
     Dates: start: 20090101

REACTIONS (4)
  - ABDOMINAL PAIN [None]
  - VOMITING IN PREGNANCY [None]
  - POST PROCEDURAL INFECTION [None]
  - CROHN'S DISEASE [None]
